FAERS Safety Report 20985808 (Version 1)
Quarter: 2022Q2

REPORT INFORMATION
  Report Type: Spontaneous
  Country: JP (occurrence: JP)
  Receive Date: 20220621
  Receipt Date: 20220621
  Transmission Date: 20220720
  Serious: Yes (Life-Threatening, Hospitalization, Other)
  Sender: FDA-Public Use
  Company Number: JP-CELGENE-JPN-20220207925

PATIENT
  Age: 82 Year
  Sex: Male
  Weight: 45 kg

DRUGS (2)
  1. VIDAZA [Suspect]
     Active Substance: AZACITIDINE
     Indication: Acute myeloid leukaemia
     Dosage: 75 MG/M2 (75 MG/M2/24 HOURS
     Route: 042
     Dates: start: 202111
  2. VIDAZA [Suspect]
     Active Substance: AZACITIDINE
     Route: 058
     Dates: start: 20211122, end: 20211201

REACTIONS (4)
  - Peritonitis [Recovered/Resolved with Sequelae]
  - Cellulitis [Recovered/Resolved]
  - Constipation [Recovered/Resolved with Sequelae]
  - Large intestine perforation [Recovered/Resolved with Sequelae]

NARRATIVE: CASE EVENT DATE: 20220125
